FAERS Safety Report 8239122-6 (Version None)
Quarter: 2012Q1

REPORT INFORMATION
  Report Type: 
  Country: None (occurrence: None)
  Receive Date: 20120328
  Receipt Date: 20120323
  Transmission Date: 20120608
  Serious: Yes (Other)
  Sender: FDA-Public Use
  Company Number: US-AMGEN-USASP2012018797

PATIENT

DRUGS (1)
  1. NEULASTA [Suspect]

REACTIONS (2)
  - CHEST PAIN [None]
  - HYPERSENSITIVITY [None]
